FAERS Safety Report 16005308 (Version 1)
Quarter: 2019Q1

REPORT INFORMATION
  Report Type: Spontaneous
  Country: US (occurrence: US)
  Receive Date: 20190226
  Receipt Date: 20190226
  Transmission Date: 20190418
  Serious: Yes (Other)
  Sender: FDA-Public Use
  Company Number: US-PFIZER INC-2018530553

PATIENT
  Age: 48 Year
  Sex: Female

DRUGS (1)
  1. LYRICA [Suspect]
     Active Substance: PREGABALIN
     Indication: SEIZURE
     Dosage: 400 MG, DAILY (ONE CAPSULE IN THE AM, TWO CAPSULES IN THE PM AND ONE CAPSULE AS NEEDED)
     Route: 048

REACTIONS (1)
  - Seizure [Unknown]
